FAERS Safety Report 9536502 (Version 2)
Quarter: 2013Q4

REPORT INFORMATION
  Report Type: Spontaneous
  Country: US (occurrence: US)
  Receive Date: 20130919
  Receipt Date: 20131016
  Transmission Date: 20140711
  Serious: Yes (Other)
  Sender: FDA-Public Use
  Company Number: US-ASTELLAS-2013US009716

PATIENT
  Sex: Female

DRUGS (4)
  1. VESICARE [Suspect]
     Indication: HYPERTONIC BLADDER
     Dosage: 10 MG, UID/QD
     Route: 048
     Dates: start: 2011
  2. MACRODANTIN [Concomitant]
     Indication: EPILEPSY
     Dosage: 50 MG, UID/QD
     Route: 048
  3. PYRIDIUM [Concomitant]
     Indication: DYSURIA
     Dosage: 200 MG, TID
     Route: 048
  4. KLONOPIN [Concomitant]
     Indication: PRODUCT USED FOR UNKNOWN INDICATION
     Dosage: UNK
     Route: 065

REACTIONS (1)
  - Carpal tunnel syndrome [Recovering/Resolving]
